FAERS Safety Report 24718752 (Version 1)
Quarter: 2024Q4

REPORT INFORMATION
  Report Type: Spontaneous
  Country: US (occurrence: None)
  Receive Date: 20241210
  Receipt Date: 20241210
  Transmission Date: 20250115
  Serious: Yes (Other)
  Sender: Public
  Company Number: None

PATIENT
  Age: 77 Year
  Sex: Female
  Weight: 102.15 kg

DRUGS (1)
  1. CABOMETYX [Suspect]
     Active Substance: CABOZANTINIB S-MALATE
     Indication: Benign renal neoplasm
     Dosage: 40 MG DAILY ORAL
     Route: 048
     Dates: start: 20240924, end: 20241207

REACTIONS (3)
  - Diarrhoea [None]
  - Stomatitis [None]
  - Drug ineffective [None]

NARRATIVE: CASE EVENT DATE: 20241209
